FAERS Safety Report 4313948-3 (Version None)
Quarter: 2004Q1

REPORT INFORMATION
  Report Type: 
  Country: None (occurrence: None)
  Receive Date: 20040305
  Receipt Date: 20040226
  Transmission Date: 20041129
  Serious: No
  Sender: FDA-Public Use
  Company Number: 7518

PATIENT
  Age: 24 Year
  Sex: Male

DRUGS (4)
  1. METHOTREXATE [Suspect]
     Indication: DESMOID TUMOUR
     Dosage: 50 MG WEEKLY
     Route: 042
  2. VINBLASTINE [Suspect]
     Dosage: 10 MG WEEKLY
     Route: 042
  3. ONDANSETRON HCL [Concomitant]
  4. METOCLOPRAMIDE [Concomitant]

REACTIONS (2)
  - HEPATIC FUNCTION ABNORMAL [None]
  - NAUSEA [None]
